FAERS Safety Report 6233863-8 (Version None)
Quarter: 2009Q2

REPORT INFORMATION
  Report Type: 
  Country: None (occurrence: None)
  Receive Date: 20090618
  Receipt Date: 20090608
  Transmission Date: 20091009
  Serious: Yes (Hospitalization)
  Sender: FDA-Public Use
  Company Number: FR-EISAI INC.-E3810-02899-SPO-FR

PATIENT
  Age: 85 Year
  Sex: Female

DRUGS (8)
  1. RABEPRAZOLE SODIUM [Suspect]
     Route: 048
     Dates: end: 20090222
  2. NEXIUM [Suspect]
     Route: 048
     Dates: start: 20090222
  3. COKENZEN [Suspect]
     Dosage: 1 DOSE
  4. CANDESARTAN CILEXETIL [Concomitant]
     Route: 048
  5. DILTIAZEM HYDROCHLORIDE [Concomitant]
  6. NORFLOXACIN [Concomitant]
     Indication: CYSTITIS
     Dates: start: 20090212, end: 20090222
  7. FLUINDIONE [Concomitant]
  8. SERETIDE [Concomitant]
     Indication: COUGH
     Dates: start: 20090219

REACTIONS (1)
  - HYPONATRAEMIA [None]
